FAERS Safety Report 6379392-2 (Version None)
Quarter: 2009Q3

REPORT INFORMATION
  Report Type: 
  Country: None (occurrence: None)
  Receive Date: 20090928
  Receipt Date: 20090925
  Transmission Date: 20100115
  Serious: Yes (Hospitalization)
  Sender: FDA-Public Use
  Company Number: A0730340A

PATIENT
  Age: 57 Year
  Sex: Male

DRUGS (14)
  1. COREG CR [Suspect]
     Indication: HYPERTENSION
     Dosage: 10MG PER DAY
     Route: 048
  2. ACTOS [Concomitant]
  3. FEXOFENADINE [Concomitant]
  4. ASPIRIN [Concomitant]
  5. LANOXIN [Concomitant]
  6. ICAR-C [Concomitant]
  7. LASIX [Concomitant]
  8. PLAVIX [Concomitant]
  9. POTASSIUM CHLORIDE [Concomitant]
  10. ZANTAC [Concomitant]
  11. ZOCOR [Concomitant]
  12. NITROGLYCERIN [Concomitant]
  13. OXYGEN [Concomitant]
  14. NEBULISER (UNKNOWN MEDICATIONS) [Concomitant]
     Route: 055

REACTIONS (4)
  - ASTHMA [None]
  - DYSPNOEA [None]
  - INCREASED UPPER AIRWAY SECRETION [None]
  - WHEEZING [None]
